FAERS Safety Report 21932326 (Version 1)
Quarter: 2023Q1

REPORT INFORMATION
  Report Type: Spontaneous
  Country: SK (occurrence: SK)
  Receive Date: 20230131
  Receipt Date: 20230131
  Transmission Date: 20230418
  Serious: Yes (Death, Other)
  Sender: FDA-Public Use
  Company Number: SK-TAKEDA-2023TUS010931

PATIENT
  Sex: Female
  Weight: 60 kg

DRUGS (1)
  1. HYQVIA [Suspect]
     Active Substance: HUMAN IMMUNOGLOBULIN G\HYALURONIDASE RECOMBINANT HUMAN
     Indication: Product used for unknown indication
     Dosage: UNK UNK, MONTHLY
     Route: 065
     Dates: start: 20211109

REACTIONS (1)
  - Death [Fatal]
